FAERS Safety Report 21328169 (Version 1)
Quarter: 2022Q3

REPORT INFORMATION
  Report Type: Spontaneous
  Country: FR (occurrence: FR)
  Receive Date: 20220913
  Receipt Date: 20220913
  Transmission Date: 20221027
  Serious: Yes (Hospitalization, Other)
  Sender: FDA-Public Use
  Company Number: None

PATIENT
  Age: 53 Year
  Sex: Female
  Weight: 68 kg

DRUGS (9)
  1. ACETAMINOPHEN [Suspect]
     Active Substance: ACETAMINOPHEN
     Indication: Pain
     Dosage: 1 G, (TOTAL)
     Route: 041
     Dates: start: 20210604, end: 20210604
  2. PROPOFOL [Suspect]
     Active Substance: PROPOFOL
     Indication: Anaesthesia
     Dosage: 200 MG TOTAL
     Route: 040
     Dates: start: 20210604, end: 20210604
  3. ATRACURIUM [Suspect]
     Active Substance: ATRACURIUM
     Indication: Anaesthesia
     Dosage: 30 MG, (TOTAL)
     Route: 040
     Dates: start: 20210604, end: 20210604
  4. EPHEDRINE [Suspect]
     Active Substance: EPHEDRINE
     Indication: Anaesthesia
     Dosage: 6 MG, (TOTAL)
     Route: 040
     Dates: start: 20210604, end: 20210604
  5. SUFENTA [Suspect]
     Active Substance: SUFENTANIL CITRATE
     Indication: Anaesthesia
     Dosage: 25 UG, (TOTAL)
     Route: 040
     Dates: start: 20210604, end: 20210604
  6. VISIPAQUE [Suspect]
     Active Substance: IODIXANOL
     Indication: Radioembolisation
     Dosage: 184 ML, (TOTAL)
     Route: 040
     Dates: start: 20210604, end: 20210604
  7. TIROFIBAN HYDROCHLORIDE [Suspect]
     Active Substance: TIROFIBAN HYDROCHLORIDE
     Indication: Cardiovascular event prophylaxis
     Dosage: 592 UG, (TOTAL)
     Route: 041
     Dates: start: 20210604, end: 20210604
  8. HEPARIN SODIUM [Suspect]
     Active Substance: HEPARIN SODIUM
     Indication: Thrombosis prophylaxis
     Dosage: 7985 IU (TOTAL)
     Route: 041
     Dates: start: 20210604, end: 20210604
  9. NEOSYNEPHRINE [Suspect]
     Active Substance: PHENYLEPHRINE HYDROCHLORIDE
     Indication: Anaesthesia
     Dosage: 650 UG, (TOTAL)
     Route: 040
     Dates: start: 20210604, end: 20210604

REACTIONS (1)
  - Ischaemic stroke [Recovering/Resolving]

NARRATIVE: CASE EVENT DATE: 20210604
